FAERS Safety Report 5422854-2 (Version None)
Quarter: 2007Q3

REPORT INFORMATION
  Report Type: 
  Country: None (occurrence: None)
  Receive Date: 20070820
  Receipt Date: 20070802
  Transmission Date: 20080115
  Serious: Yes (Hospitalization, Other)
  Sender: FDA-Public Use
  Company Number: CQT2-2007-00014

PATIENT
  Age: 35 Year
  Sex: Female

DRUGS (8)
  1. 422 (ANAGRELIDE)(422 (ANAGRELIDE)) CAPSULE [Suspect]
     Dosage: 1.5 MG, 1X/DAY:QD, ORAL; 0.5 MG, 2X/DAY:BID, ORAL; 0.5 MG, 2X/DAY:BID, ORAL
     Route: 048
     Dates: start: 20061222, end: 20070301
  2. 422 (ANAGRELIDE)(422 (ANAGRELIDE)) CAPSULE [Suspect]
     Dosage: 1.5 MG, 1X/DAY:QD, ORAL; 0.5 MG, 2X/DAY:BID, ORAL; 0.5 MG, 2X/DAY:BID, ORAL
     Route: 048
     Dates: start: 20070525, end: 20070718
  3. 422 (ANAGRELIDE)(422 (ANAGRELIDE)) CAPSULE [Suspect]
     Dosage: 1.5 MG, 1X/DAY:QD, ORAL; 0.5 MG, 2X/DAY:BID, ORAL; 0.5 MG, 2X/DAY:BID, ORAL
     Route: 048
     Dates: start: 20070726
  4. HYDROXYUREA [Suspect]
     Indication: ESSENTIAL THROMBOCYTHAEMIA
     Dosage: 500 MG, 1X/DAY:QD,ORAL; 1 G, 1X/DAY:QD, ORAL
     Route: 048
     Dates: start: 19980101, end: 20061120
  5. HYDROXYUREA [Suspect]
     Indication: ESSENTIAL THROMBOCYTHAEMIA
     Dosage: 500 MG, 1X/DAY:QD,ORAL; 1 G, 1X/DAY:QD, ORAL
     Route: 048
     Dates: start: 19980101
  6. PEGYLATED INTEFERON ALFA 2A(PEGYLATED INTEFERON ALFA 2A) [Suspect]
     Indication: ESSENTIAL THROMBOCYTHAEMIA
     Dosage: 45 UG, 1X1/WEEK, SUBCUTANEOUS
     Route: 058
     Dates: start: 20070301, end: 20070529
  7. AMITRIPTYLINE HCL [Concomitant]
  8. ENOXAPARIN SODIUM [Concomitant]

REACTIONS (3)
  - ABORTION SPONTANEOUS [None]
  - DRUG EXPOSURE DURING PREGNANCY [None]
  - MULTIPLE PREGNANCY [None]
